FAERS Safety Report 7086710-9 (Version None)
Quarter: 2010Q4

REPORT INFORMATION
  Report Type: 
  Country: None (occurrence: None)
  Receive Date: 20101105
  Receipt Date: 20101026
  Transmission Date: 20110411
  Serious: Yes (Other)
  Sender: FDA-Public Use
  Company Number: US-ROCHE-647871

PATIENT
  Sex: Male
  Weight: 90.7 kg

DRUGS (3)
  1. ACCUTANE [Suspect]
     Indication: ACNE
     Route: 065
     Dates: start: 20021007, end: 20030301
  2. ACCUTANE [Suspect]
     Route: 065
     Dates: start: 20030922, end: 20040407
  3. TRIAZ CLEANSER [Concomitant]
     Indication: ACNE

REACTIONS (17)
  - ANAEMIA [None]
  - APHTHOUS STOMATITIS [None]
  - ARTHROPATHY [None]
  - BLOOD CHOLESTEROL INCREASED [None]
  - BLOOD TRIGLYCERIDES INCREASED [None]
  - COLITIS [None]
  - COLITIS ULCERATIVE [None]
  - CROHN'S DISEASE [None]
  - DRUG HYPERSENSITIVITY [None]
  - FEAR OF DISEASE [None]
  - HYPERTENSION [None]
  - ILEITIS [None]
  - INFLAMMATORY BOWEL DISEASE [None]
  - JOINT SPRAIN [None]
  - PAIN [None]
  - PRURITUS [None]
  - STRESS [None]
